FAERS Safety Report 8443379-6 (Version None)
Quarter: 2012Q2

REPORT INFORMATION
  Report Type: 
  Country: None (occurrence: None)
  Receive Date: 20120618
  Receipt Date: 20120608
  Transmission Date: 20120825
  Serious: Yes (Other)
  Sender: FDA-Public Use
  Company Number: US-BIOGENIDEC-2012BI003203

PATIENT
  Age: 26 Year
  Sex: Female

DRUGS (8)
  1. AVONEX [Suspect]
     Route: 030
     Dates: start: 20111208
  2. RITALIN [Concomitant]
     Route: 048
  3. VITAMIN [Concomitant]
  4. LORTAB [Concomitant]
     Route: 048
  5. AVONEX [Suspect]
     Indication: MULTIPLE SCLEROSIS
     Route: 030
     Dates: start: 20100722, end: 20110301
  6. DIAZEPAM [Concomitant]
     Route: 048
  7. IBUPROFEN [Concomitant]
     Route: 048
  8. CITALOPRAM [Concomitant]
     Route: 048

REACTIONS (2)
  - SALPINGECTOMY [None]
  - ECTOPIC PREGNANCY [None]
